FAERS Safety Report 6963226-9 (Version None)
Quarter: 2010Q3

REPORT INFORMATION
  Report Type: 
  Country: None (occurrence: None)
  Receive Date: 20100902
  Receipt Date: 20100825
  Transmission Date: 20110219
  Serious: Yes (Other)
  Sender: FDA-Public Use
  Company Number: US-AMGEN-QUU432552

PATIENT
  Sex: Male
  Weight: 124.9 kg

DRUGS (2)
  1. NPLATE [Suspect]
     Indication: IDIOPATHIC THROMBOCYTOPENIC PURPURA
     Dates: start: 20100330, end: 20100609
  2. CORTICOSTEROIDS [Concomitant]
     Dates: start: 20100301

REACTIONS (1)
  - MEDICATION ERROR [None]
